FAERS Safety Report 23052274 (Version 2)
Quarter: 2024Q2

REPORT INFORMATION
  Report Type: Report from Study
  Country: ES (occurrence: ES)
  Receive Date: 20231010
  Receipt Date: 20240529
  Transmission Date: 20240716
  Serious: Yes (Other)
  Sender: FDA-Public Use
  Company Number: ES-ABBVIE-5441758

PATIENT
  Age: 37 Year
  Sex: Male
  Weight: 83 kg

DRUGS (20)
  1. UPADACITINIB [Suspect]
     Active Substance: UPADACITINIB
     Indication: Rheumatoid arthritis
     Route: 048
     Dates: start: 20211021
  2. BRIVARACETAM [Concomitant]
     Active Substance: BRIVARACETAM
     Indication: Epilepsy
     Route: 048
     Dates: start: 20230829
  3. FOLIC ACID [Concomitant]
     Active Substance: FOLIC ACID
     Indication: Product used for unknown indication
     Route: 048
  4. VARICELLA-ZOSTER VIRUS STRAIN OKA/MERCK LIVE ANTIGEN [Concomitant]
     Active Substance: VARICELLA-ZOSTER VIRUS STRAIN OKA/MERCK LIVE ANTIGEN
     Indication: Product used for unknown indication
     Route: 065
     Dates: start: 20190802, end: 20190802
  5. FOSAVANCE [Concomitant]
     Active Substance: ALENDRONATE SODIUM\CHOLECALCIFEROL
     Indication: Prophylaxis
     Route: 048
  6. FOSTER [Concomitant]
     Active Substance: BECLOMETHASONE\FORMOTEROL
     Indication: COVID-19
     Dosage: 100/6 UG
     Route: 055
     Dates: start: 20220323
  7. METHYLPREDNISOLONE [Concomitant]
     Active Substance: METHYLPREDNISOLONE
     Indication: Product used for unknown indication
     Route: 048
     Dates: start: 2017, end: 20231005
  8. OMEPRAZOLE [Concomitant]
     Active Substance: DONEPEZIL HYDROCHLORIDE\OMEPRAZOLE\OMEPRAZOLE MAGNESIUM
     Indication: Prophylaxis
     Route: 048
  9. STREPTOCOCCUS PNEUMONIAE [Concomitant]
     Indication: Product used for unknown indication
     Dosage: VACCINE
     Route: 065
     Dates: start: 20181105, end: 20181105
  10. STREPTOCOCCUS PNEUMONIAE [Concomitant]
     Indication: Product used for unknown indication
     Dosage: VACCINE
     Route: 065
     Dates: start: 20190114, end: 20190114
  11. CALCIFEDIOL [Concomitant]
     Active Substance: CALCIFEDIOL
     Indication: Prophylaxis
     Route: 048
  12. CALCIUM CARBONATE\CHOLECALCIFEROL [Concomitant]
     Active Substance: CALCIUM CARBONATE\CHOLECALCIFEROL
     Indication: Prophylaxis
     Route: 048
  13. INFLUENZA VIRUS VACCINE [Concomitant]
     Active Substance: INFLUENZA VIRUS VACCINE
     Indication: Product used for unknown indication
     Dosage: SEASONAL
     Route: 065
     Dates: start: 20191112, end: 20191112
  14. INFLUENZA VIRUS VACCINE [Concomitant]
     Active Substance: INFLUENZA VIRUS VACCINE
     Indication: Product used for unknown indication
     Dosage: SEASONAL
     Route: 065
     Dates: start: 20201016, end: 20201016
  15. METHOTREXATE [Concomitant]
     Active Substance: METHOTREXATE
     Indication: Product used for unknown indication
     Route: 058
     Dates: start: 201806
  16. SARS-CoV-2 vaccine [Concomitant]
     Indication: Product used for unknown indication
     Route: 030
     Dates: start: 20210826, end: 20210826
  17. SARS-CoV-2 vaccine [Concomitant]
     Indication: Product used for unknown indication
     Route: 030
     Dates: start: 20210805, end: 20210805
  18. SARS-CoV-2 vaccine [Concomitant]
     Indication: Product used for unknown indication
     Route: 030
     Dates: start: 20211202, end: 20211202
  19. COLCHICINE [Concomitant]
     Active Substance: COLCHICINE
     Indication: Product used for unknown indication
     Route: 048
  20. CELECOXIB [Concomitant]
     Active Substance: CELECOXIB
     Indication: Product used for unknown indication
     Route: 048

REACTIONS (1)
  - Epilepsy [Recovering/Resolving]

NARRATIVE: CASE EVENT DATE: 20231005
